FAERS Safety Report 6981637-2 (Version None)
Quarter: 2010Q3

REPORT INFORMATION
  Report Type: 
  Country: None (occurrence: None)
  Receive Date: 20100914
  Receipt Date: 20090928
  Transmission Date: 20110219
  Serious: No
  Sender: FDA-Public Use
  Company Number: US-PFIZER INC-2009253205

PATIENT
  Sex: Male
  Weight: 80.7 kg

DRUGS (5)
  1. LYRICA [Suspect]
     Indication: PERIPHERAL SENSORY NEUROPATHY
     Dosage: 150 MG, 2X/DAY
     Dates: start: 20090101, end: 20090805
  2. ATENOLOL [Concomitant]
     Dosage: UNK
  3. PLAVIX [Concomitant]
     Dosage: UNK
  4. LISINOPRIL [Concomitant]
     Dosage: UNK
  5. ASPIRIN [Concomitant]
     Dosage: 325 MG, UNK

REACTIONS (8)
  - BALANCE DISORDER [None]
  - BLOOD GLUCOSE INCREASED [None]
  - BURNING SENSATION [None]
  - DIZZINESS [None]
  - HEADACHE [None]
  - OVERDOSE [None]
  - SOMNOLENCE [None]
  - VISION BLURRED [None]
